FAERS Safety Report 19434502 (Version 1)
Quarter: 2021Q2

REPORT INFORMATION
  Report Type: Spontaneous
  Country: US (occurrence: US)
  Receive Date: 20210617
  Receipt Date: 20210617
  Transmission Date: 20210717
  Serious: No
  Sender: FDA-Public Use
  Company Number: US-ROCHE-2658366

PATIENT
  Age: 59 Year
  Sex: Female
  Weight: 59.02 kg

DRUGS (1)
  1. ACTEMRA [Suspect]
     Active Substance: TOCILIZUMAB
     Indication: RHEUMATOID ARTHRITIS
     Route: 058
     Dates: start: 20200101

REACTIONS (2)
  - Inappropriate schedule of product administration [Unknown]
  - Myalgia [Unknown]

NARRATIVE: CASE EVENT DATE: 20200809
